FAERS Safety Report 6736637-4 (Version None)
Quarter: 2010Q2

REPORT INFORMATION
  Report Type: 
  Country: None (occurrence: None)
  Receive Date: 20100520
  Receipt Date: 20100520
  Transmission Date: 20101027
  Serious: Yes (Hospitalization)
  Sender: FDA-Public Use
  Company Number: None

PATIENT
  Age: 55 Year
  Sex: Male
  Weight: 106 kg

DRUGS (1)
  1. DIVALPROEX SODIUM [Suspect]
     Indication: BIPOLAR I DISORDER
     Dosage: 1000 MG HS PO
     Route: 048
     Dates: start: 20100510, end: 20100517

REACTIONS (3)
  - ACUTE HEPATIC FAILURE [None]
  - CONFUSIONAL STATE [None]
  - INTERNATIONAL NORMALISED RATIO ABNORMAL [None]
